FAERS Safety Report 11779006 (Version 1)
Quarter: 2015Q4

REPORT INFORMATION
  Report Type: Spontaneous
  Country: IT (occurrence: IT)
  Receive Date: 20151125
  Receipt Date: 20151125
  Transmission Date: 20160304
  Serious: Yes (Hospitalization)
  Sender: FDA-Public Use
  Company Number: IT-TEVA-610972ACC

PATIENT
  Age: 68 Year
  Sex: Female
  Weight: 59 kg

DRUGS (3)
  1. VIEKIRAX - 12,5MG/75MG/50MG COMPRESSA RIVESTITA CON FILM [Suspect]
     Active Substance: OMBITASVIR\PARITAPREVIR\RITONAVIR
     Indication: HEPATITIS C
     Dosage: 137.5 MILLIGRAM DAILY; 137.5 MG DAILY
     Route: 048
     Dates: start: 20150724, end: 20150918
  2. RIBAVIRINA TEVA PHARMA BV - 200 MG COMPRESSA RIVESTITA CON FILM - TEVA [Suspect]
     Active Substance: RIBAVIRIN
     Indication: HEPATITIS C
     Dosage: 200 MILLIGRAM DAILY; 200 MG DAILY
     Route: 048
     Dates: start: 20150727, end: 20150829
  3. EXVIERA - 250 MG COMPRESSA RIVESTITA CON FILM - ABBVIE LTD [Suspect]
     Active Substance: DASABUVIR
     Indication: HEPATITIS C
     Dosage: 250 MILLIGRAM DAILY; 250 MG DAILY
     Route: 048
     Dates: start: 20150727, end: 20150918

REACTIONS (6)
  - Diabetic ketoacidosis [Not Recovered/Not Resolved]
  - Gravitational oedema [Not Recovered/Not Resolved]
  - Hepatic encephalopathy [Not Recovered/Not Resolved]
  - Hepatic cirrhosis [Not Recovered/Not Resolved]
  - Ascites [Not Recovered/Not Resolved]
  - Peripheral sensory neuropathy [Not Recovered/Not Resolved]

NARRATIVE: CASE EVENT DATE: 20150829
